FAERS Safety Report 9228553 (Version 1)
Quarter: 2013Q2

REPORT INFORMATION
  Report Type: Spontaneous
  Country: US (occurrence: US)
  Receive Date: 20130412
  Receipt Date: 20130412
  Transmission Date: 20140414
  Serious: No
  Sender: FDA-Public Use
  Company Number: US-009507513-1304USA002147

PATIENT
  Age: 40 Year
  Sex: Female

DRUGS (2)
  1. NUVARING [Suspect]
     Indication: CONTRACEPTION
     Dosage: UNK
     Route: 067
  2. ANTIMICROBIAL (UNSPECIFIED) [Interacting]
     Indication: MALAISE

REACTIONS (4)
  - General symptom [Unknown]
  - Drug interaction [Unknown]
  - Unintended pregnancy [Unknown]
  - Malaise [Unknown]
